FAERS Safety Report 8469962-X (Version None)
Quarter: 2012Q2

REPORT INFORMATION
  Report Type: 
  Country: None (occurrence: None)
  Receive Date: 20120627
  Receipt Date: 20120620
  Transmission Date: 20120825
  Serious: No
  Sender: FDA-Public Use
  Company Number: US-BIOGENIDEC-2012BI014563

PATIENT
  Age: 41 Year
  Sex: Male

DRUGS (4)
  1. AVONEX [Concomitant]
     Route: 030
     Dates: start: 20090601
  2. TYSABRI [Suspect]
     Route: 042
     Dates: start: 20120522
  3. TYSABRI [Suspect]
     Indication: MULTIPLE SCLEROSIS
     Route: 042
     Dates: start: 20111006
  4. AVONEX [Concomitant]
     Indication: MULTIPLE SCLEROSIS
     Route: 030
     Dates: start: 20080101

REACTIONS (1)
  - SURGERY [None]
